FAERS Safety Report 22065858 (Version 5)
Quarter: 2024Q4

REPORT INFORMATION
  Report Type: Report from Study
  Country: JP (occurrence: JP)
  Receive Date: 20230306
  Receipt Date: 20241230
  Transmission Date: 20250115
  Serious: Yes (Hospitalization)
  Sender: ABBVIE
  Company Number: JP-TAKEDA-2023TJP002623

PATIENT
  Age: 74 Year
  Sex: Male

DRUGS (10)
  1. LEUPROLIDE ACETATE [Suspect]
     Active Substance: LEUPROLIDE ACETATE
     Indication: Bulbospinal muscular atrophy congenital
     Dosage: 11.25 MILLIGRAM, Q3MONTHS
     Route: 058
     Dates: start: 20210909
  2. TOCOPHERYL NICOTINATE [Concomitant]
     Active Substance: TOCOPHERYL NICOTINATE, D-.ALPHA.
     Indication: Product used for unknown indication
     Dosage: 300 MILLIGRAM
     Route: 065
  3. METHYLCOBALAMIN [Concomitant]
     Active Substance: METHYLCOBALAMIN
     Indication: Bulbospinal muscular atrophy congenital
     Dosage: 1500 MICROGRAM
     Route: 065
     Dates: end: 20220808
  4. KETOPROFEN [Concomitant]
     Active Substance: KETOPROFEN
     Indication: Bulbospinal muscular atrophy congenital
     Dosage: 40 MILLIGRAM
     Route: 065
  5. LOSARTAN POTASSIUM [Concomitant]
     Active Substance: LOSARTAN POTASSIUM
     Indication: Product used for unknown indication
     Dosage: 50 MILLIGRAM
     Route: 065
  6. CINAL [Concomitant]
     Indication: Product used for unknown indication
     Dosage: 2 GRAM
     Route: 065
  7. TRICHLORMETHIAZIDE [Concomitant]
     Active Substance: TRICHLORMETHIAZIDE
     Indication: Product used for unknown indication
     Dosage: 1 MILLIGRAM
     Route: 065
  8. METHYLCOBALAMIN [Concomitant]
     Active Substance: METHYLCOBALAMIN
     Indication: Bulbospinal muscular atrophy congenital
     Dosage: 1500 MICROGRAM
     Route: 065
     Dates: start: 20220809
  9. Vitaneurin [Concomitant]
     Indication: Bulbospinal muscular atrophy congenital
     Dosage: FORM STRENGTH: 75 MILLIGRAM
     Route: 065
  10. TRICHLORMETHIAZIDE [Concomitant]
     Active Substance: TRICHLORMETHIAZIDE
     Indication: Product used for unknown indication
     Dosage: 1 MILLIGRAM
     Route: 065

REACTIONS (5)
  - Ankle fracture [Recovered/Resolved]
  - Fall [Recovered/Resolved]
  - Oropharyngeal pain [Recovered/Resolved]
  - Adverse event [Unknown]
  - COVID-19 [Recovered/Resolved]

NARRATIVE: CASE EVENT DATE: 20221130
